FAERS Safety Report 17590330 (Version 1)
Quarter: 2020Q1

REPORT INFORMATION
  Report Type: Spontaneous
  Country: US (occurrence: US)
  Receive Date: 20200326
  Receipt Date: 20200326
  Transmission Date: 20200409
  Serious: Yes (Hospitalization)
  Sender: FDA-Public Use
  Company Number: None

PATIENT
  Age: 69 Year
  Sex: Female
  Weight: 95.85 kg

DRUGS (20)
  1. SPIRIVA [Concomitant]
     Active Substance: TIOTROPIUM BROMIDE MONOHYDRATE
  2. CANASA [Concomitant]
     Active Substance: MESALAMINE
  3. DEXAMETHASONE. [Concomitant]
     Active Substance: DEXAMETHASONE
  4. DILTIAZEM. [Concomitant]
     Active Substance: DILTIAZEM
  5. EXEMASTANE [Concomitant]
     Active Substance: EXEMESTANE
  6. IVIG [Concomitant]
     Active Substance: HUMAN IMMUNOGLOBULIN G
  7. PREDNISONE. [Concomitant]
     Active Substance: PREDNISONE
  8. RECLAST [Concomitant]
     Active Substance: ZOLEDRONIC ACID
  9. VITAMIN D [Concomitant]
     Active Substance: VITAMIN D NOS
  10. FLOVENT [Concomitant]
     Active Substance: FLUTICASONE PROPIONATE
  11. MICAFUNGIN. [Concomitant]
     Active Substance: MICAFUNGIN SODIUM
  12. ZANTAC 75 [Concomitant]
     Active Substance: RANITIDINE HYDROCHLORIDE
  13. APRISO [Concomitant]
     Active Substance: MESALAMINE
  14. CALCIUM +D [Concomitant]
     Active Substance: CALCIUM\VITAMIN D
  15. VITAMIN B -1 [Concomitant]
  16. VITAMIN C [Concomitant]
     Active Substance: ASCORBIC ACID
  17. EVEROLIMUS. [Suspect]
     Active Substance: EVEROLIMUS
  18. LIALDA [Concomitant]
     Active Substance: MESALAMINE
  19. SIMVASTATIN. [Concomitant]
     Active Substance: SIMVASTATIN
  20. MIRAPEX [Concomitant]
     Active Substance: PRAMIPEXOLE DIHYDROCHLORIDE

REACTIONS (4)
  - Nausea [None]
  - Deep vein thrombosis [None]
  - Vomiting [None]
  - Pulmonary oedema [None]

NARRATIVE: CASE EVENT DATE: 20200326
